FAERS Safety Report 12192209 (Version 2)
Quarter: 2016Q1

REPORT INFORMATION
  Report Type: Spontaneous
  Country: US (occurrence: US)
  Receive Date: 20160318
  Receipt Date: 20160322
  Transmission Date: 20160526
  Serious: No
  Sender: FDA-Public Use
  Company Number: US-PFIZER INC-2016108469

PATIENT
  Age: 53 Year
  Sex: Female
  Weight: 142.8 kg

DRUGS (4)
  1. FLECTOR [Suspect]
     Active Substance: DICLOFENAC EPOLAMINE
     Indication: ARTHRITIS
  2. FLECTOR [Suspect]
     Active Substance: DICLOFENAC EPOLAMINE
     Indication: ARTHRALGIA
     Dosage: 1.3% TOPICAL PATCH TO LEFT KNEE, 2X/DAY
     Dates: start: 201503, end: 201512
  3. SYNVISC [Concomitant]
     Active Substance: HYALURONATE SODIUM
     Indication: PAIN IN EXTREMITY
     Dosage: INJECTION BY PHYSICIAN INTO LEFT KNEE EVERY 6 MONTHS
  4. SYNVISC [Concomitant]
     Active Substance: HYALURONATE SODIUM
     Indication: ARTHRALGIA

REACTIONS (3)
  - Vertigo [Recovering/Resolving]
  - Body height decreased [Unknown]
  - Product use issue [Unknown]

NARRATIVE: CASE EVENT DATE: 201503
